FAERS Safety Report 9849587 (Version 1)
Quarter: 2014Q1

REPORT INFORMATION
  Report Type: Spontaneous
  Country: US (occurrence: None)
  Receive Date: 20140124
  Receipt Date: 20140124
  Transmission Date: 20141002
  Serious: Yes (Other)
  Sender: FDA-Public Use
  Company Number: 2014P1000300

PATIENT
  Age: 82 Year
  Sex: Male
  Weight: 72.58 kg

DRUGS (5)
  1. TERAZOSIN HCL [Suspect]
     Indication: NOCTURIA
     Route: 048
     Dates: start: 20131231, end: 201401
  2. PLAVIX [Concomitant]
  3. METOPROLOL [Concomitant]
  4. SIMVASTATIN [Concomitant]
  5. BABY ASPIRIN [Concomitant]

REACTIONS (4)
  - Chills [None]
  - Chest discomfort [None]
  - Urine flow decreased [None]
  - Product substitution issue [None]
